FAERS Safety Report 13602160 (Version 2)
Quarter: 2017Q2

REPORT INFORMATION
  Report Type: Spontaneous
  Country: NL (occurrence: NL)
  Receive Date: 20170601
  Receipt Date: 20170626
  Transmission Date: 20170830
  Serious: Yes (Death)
  Sender: FDA-Public Use
  Company Number: NL-ACTELION-A-CH2017-154312

PATIENT
  Age: 2 Year
  Sex: Female

DRUGS (1)
  1. TRACLEER [Suspect]
     Active Substance: BOSENTAN
     Indication: PULMONARY ARTERIAL HYPERTENSION
     Dosage: 32 MG, BID
     Route: 048
     Dates: start: 20160909, end: 20170518

REACTIONS (1)
  - Death [Fatal]

NARRATIVE: CASE EVENT DATE: 20170518
